FAERS Safety Report 6407402-2 (Version None)
Quarter: 2009Q4

REPORT INFORMATION
  Report Type: 
  Country: None (occurrence: None)
  Receive Date: 20091014
  Receipt Date: 20090929
  Transmission Date: 20100525
  Serious: Yes (Hospitalization)
  Sender: FDA-Public Use
  Company Number: 2009001798

PATIENT
  Age: 76 Year
  Sex: Male

DRUGS (7)
  1. ERLOTINIB HYDROCHLORIDE [Suspect]
     Indication: LUNG NEOPLASM MALIGNANT
     Dosage: (QD),ORAL
     Route: 048
  2. TRAITEC [Concomitant]
  3. ATORVASTATIN CALCIUM [Concomitant]
  4. BISOPROLOL FUMARATE [Concomitant]
  5. MUCOMYST [Concomitant]
  6. VASTAREL [Concomitant]
  7. PLAVIX [Concomitant]

REACTIONS (2)
  - HYPOXIA [None]
  - LUNG DISORDER [None]
